FAERS Safety Report 5154496-0 (Version None)
Quarter: 2006Q4

REPORT INFORMATION
  Report Type: 
  Country: None (occurrence: None)
  Receive Date: 20061114
  Receipt Date: 20061031
  Transmission Date: 20070319
  Serious: Yes (Death, Hospitalization)
  Sender: FDA-Public Use
  Company Number: HQWYE192217OCT06

PATIENT
  Age: 70 Year
  Sex: Male

DRUGS (6)
  1. INDERAL [Suspect]
     Indication: BLOOD PRESSURE
     Dosage: 80 MG 1X PER 1 DAY ORAL
     Route: 048
     Dates: start: 20010101, end: 20061005
  2. CETIRIZINE HCL [Concomitant]
  3. THIAMINE [Concomitant]
  4. VITAMIN B COMPLEX CAP [Concomitant]
  5. LANSOPRAZOLE [Concomitant]
  6. ASCORBIC ACID [Concomitant]

REACTIONS (2)
  - THROMBOCYTOPENIA [None]
  - THROMBOTIC STROKE [None]
